FAERS Safety Report 13987165 (Version 1)
Quarter: 2017Q3

REPORT INFORMATION
  Report Type: Spontaneous
  Country: US (occurrence: US)
  Receive Date: 20170919
  Receipt Date: 20170919
  Transmission Date: 20171128
  Serious: No
  Sender: FDA-Public Use
  Company Number: US-ALLERGAN-1727170US

PATIENT
  Age: 17 Year
  Sex: Female

DRUGS (1)
  1. LILETTA [Suspect]
     Active Substance: LEVONORGESTREL
     Indication: CONTRACEPTIVE IMPLANT
     Dosage: 52 MG
     Route: 015
     Dates: start: 201702

REACTIONS (8)
  - Lymph node pain [Unknown]
  - Bacterial infection [Unknown]
  - Dysuria [Unknown]
  - Stress urinary incontinence [Unknown]
  - Dyspareunia [Unknown]
  - Migraine [Unknown]
  - Lymphadenopathy [Unknown]
  - Depressed mood [Unknown]

NARRATIVE: CASE EVENT DATE: 2017
